FAERS Safety Report 19111747 (Version 1)
Quarter: 2021Q2

REPORT INFORMATION
  Report Type: Spontaneous
  Country: US (occurrence: US)
  Receive Date: 20210408
  Receipt Date: 20210408
  Transmission Date: 20210717
  Serious: No
  Sender: FDA-Public Use
  Company Number: US-SA-2021SA103764

PATIENT
  Age: 76 Year
  Sex: Female

DRUGS (1)
  1. TOUJEO [Suspect]
     Active Substance: INSULIN GLARGINE
     Indication: TYPE 2 DIABETES MELLITUS
     Dosage: 34 UNITS MORNING/30 UNITS EVENING, Q12H
     Dates: start: 2016

REACTIONS (9)
  - Fall [Unknown]
  - Inappropriate schedule of product administration [Unknown]
  - Drug dose omission by device [Unknown]
  - Abdominal discomfort [Unknown]
  - Skin abrasion [Unknown]
  - Tooth injury [Unknown]
  - Device issue [Unknown]
  - Joint injury [Unknown]
  - Pain [Unknown]

NARRATIVE: CASE EVENT DATE: 20210324
